FAERS Safety Report 6723741-X (Version None)
Quarter: 2010Q2

REPORT INFORMATION
  Report Type: 
  Country: None (occurrence: None)
  Receive Date: 20100513
  Receipt Date: 20100305
  Transmission Date: 20101027
  Serious: Yes (Death, Life-Threatening)
  Sender: FDA-Public Use
  Company Number: NL-ROCHE-644924

PATIENT
  Sex: Female
  Weight: 73.5 kg

DRUGS (5)
  1. TOCILIZUMAB [Suspect]
     Indication: RHEUMATOID ARTHRITIS
     Dosage: FORM: INFUSION, UNITS: 3 VIALS, FREQUENCY: 1; LAST DOSE PRIOR TO SAE: 30 JUNE 2009
     Route: 042
     Dates: start: 20090630
  2. PREDNISONE [Suspect]
     Indication: DRUG USE FOR UNKNOWN INDICATION
     Route: 065
  3. PANADOL [Concomitant]
     Dates: start: 20090525, end: 20090720
  4. FOSAMAX [Concomitant]
     Dates: start: 20080401, end: 20090720
  5. OMEPRAZOLE [Concomitant]
     Dates: start: 20081030, end: 20090720

REACTIONS (1)
  - STREPTOCOCCAL SEPSIS [None]
